FAERS Safety Report 8180580-3 (Version None)
Quarter: 2012Q1

REPORT INFORMATION
  Report Type: 
  Country: None (occurrence: None)
  Receive Date: 20120302
  Receipt Date: 20120228
  Transmission Date: 20120608
  Serious: No
  Sender: FDA-Public Use
  Company Number: US-TEVA-325346USA

PATIENT
  Sex: Female
  Weight: 56.75 kg

DRUGS (2)
  1. SPIRONOLACTONE [Concomitant]
     Indication: ACNE
  2. PLAN B ONE-STEP [Suspect]
     Indication: POST COITAL CONTRACEPTION
     Dosage: 1.5 MILLIGRAM;
     Route: 048
     Dates: start: 20120207, end: 20120207

REACTIONS (3)
  - MENSTRUATION IRREGULAR [None]
  - ABDOMINAL PAIN LOWER [None]
  - NAUSEA [None]
